FAERS Safety Report 10032380 (Version 2)
Quarter: 2014Q2

REPORT INFORMATION
  Report Type: Spontaneous
  Country: PL (occurrence: PL)
  Receive Date: 20140324
  Receipt Date: 20140401
  Transmission Date: 20141212
  Serious: Yes (Life-Threatening)
  Sender: FDA-Public Use
  Company Number: PL-AMGEN-POLSP2014020067

PATIENT
  Age: 3 Year
  Sex: Male

DRUGS (3)
  1. ENBREL [Suspect]
     Indication: JUVENILE IDIOPATHIC ARTHRITIS
     Dosage: 0.8 MG/KG, WEEKLY
     Route: 058
  2. METHOTREXATE [Concomitant]
     Dosage: 1 MG/KG, WEEKLY
  3. NAPROXEN [Concomitant]
     Dosage: 15 MG/KG, WEEKLY

REACTIONS (1)
  - Histiocytosis haematophagic [Unknown]
